FAERS Safety Report 12817463 (Version 4)
Quarter: 2016Q4

REPORT INFORMATION
  Report Type: Report from Study
  Country: US (occurrence: US)
  Receive Date: 20161005
  Receipt Date: 20161201
  Transmission Date: 20170207
  Serious: Yes (Hospitalization, Disabling)
  Sender: FDA-Public Use
  Company Number: US-ACTELION-A-US2016-142935

PATIENT
  Age: 65 Year
  Sex: Female

DRUGS (6)
  1. ADEMPAS [Concomitant]
     Active Substance: RIOCIGUAT
  2. OPSUMIT [Suspect]
     Active Substance: MACITENTAN
     Indication: PULMONARY ARTERIAL HYPERTENSION
     Dosage: 10 MG, QD
     Route: 048
     Dates: start: 201608, end: 20161103
  3. XARELTO [Concomitant]
     Active Substance: RIVAROXABAN
  4. HYDROCODONE [Concomitant]
     Active Substance: HYDROCODONE
     Dosage: 10 MG, PRN
  5. FLEXERIL [Concomitant]
     Active Substance: CYCLOBENZAPRINE HYDROCHLORIDE
     Dosage: UNK MG, PRN
  6. OPSUMIT [Suspect]
     Active Substance: MACITENTAN
     Dosage: 10 MG, UNK
     Route: 048
     Dates: start: 20160915

REACTIONS (13)
  - Dyspnoea [Unknown]
  - Memory impairment [Recovered/Resolved]
  - Hypotension [Unknown]
  - Fatigue [Unknown]
  - Loss of consciousness [Recovered/Resolved]
  - Confusional state [Unknown]
  - Oxygen saturation decreased [Not Recovered/Not Resolved]
  - Right atrial enlargement [Not Recovered/Not Resolved]
  - Tremor [Unknown]
  - Rash [Unknown]
  - Somnolence [Recovered/Resolved]
  - Pleural effusion [Unknown]
  - Cardiac failure congestive [Recovered/Resolved]

NARRATIVE: CASE EVENT DATE: 201609
